FAERS Safety Report 4382986-7 (Version None)
Quarter: 2004Q2

REPORT INFORMATION
  Report Type: 
  Country: None (occurrence: None)
  Receive Date: 20040617
  Receipt Date: 20040604
  Transmission Date: 20050107
  Serious: Yes (Death, Hospitalization, Congenital Anomaly, Other)
  Sender: FDA-Public Use
  Company Number: A126434

PATIENT
  Age: 72 Year
  Sex: Female
  Weight: 45 kg

DRUGS (18)
  1. AMLODIPINE [Suspect]
     Indication: HYPERTENSION
     Dosage: (1 IN 1 D), ORAL
     Route: 048
     Dates: start: 20000101, end: 20000513
  2. FAMOTIDINE [Suspect]
     Indication: ILL-DEFINED DISORDER
  3. SENNOSIDE A+B (SENNOSIDE A+B) [Suspect]
     Indication: ILL-DEFINED DISORDER
     Dates: start: 20001001, end: 20000101
  4. TEMOCAPRIL HYDROCHLORIDE (TEMOCARPRIL HYDROCHLORIDE) [Suspect]
     Indication: HYPERTENSION
     Dosage: (1 IN 1 D), ORAL
     Route: 048
     Dates: start: 20000101, end: 20000428
  5. CEFEPIME (CEFEPIME) [Suspect]
     Indication: ACTINOMYCOSIS
     Dates: start: 20000101, end: 20000101
  6. MEROPENEM (MEROPENEM) [Suspect]
     Indication: ACTINOMYCOSIS
     Dates: start: 20000101, end: 20000101
  7. MINOCYCLINE HCL [Concomitant]
  8. METHYLPREDNISOLONE [Concomitant]
  9. BACTRIM [Concomitant]
  10. WARFARIN SODIUM [Concomitant]
  11. FUROSEMIDE [Concomitant]
  12. TICLOPIDINE HCL [Concomitant]
  13. SUPLATAST TOSILATE (SUPLATAST TOSILATE) [Concomitant]
  14. MAGNESIUM OXIDE (MAGNESIUM OXIDE) [Concomitant]
  15. TRIAZOLAM [Concomitant]
  16. MARZULENE S (LEVOGLUTAMIDE, SODIUM GUALENATE) [Concomitant]
  17. ALOSENN (ACHILLEA, RUBIA ROOT TINCTURE, SENNA FRUIT, SENNA LEAF, TARAX [Concomitant]
  18. METILDIGOXIN (METILDIGOXIN) [Concomitant]

REACTIONS (19)
  - B-CELL LYMPHOMA [None]
  - CONDITION AGGRAVATED [None]
  - DEHYDRATION [None]
  - DERMATITIS EXFOLIATIVE [None]
  - DERMATOMYOSITIS [None]
  - DISEASE RECURRENCE [None]
  - DRUG ERUPTION [None]
  - DRUG HYPERSENSITIVITY [None]
  - DRUG INEFFECTIVE [None]
  - EOSINOPHIL COUNT INCREASED [None]
  - ERYTHEMA [None]
  - LIVER DISORDER [None]
  - LYMPHOCYTE STIMULATION TEST POSITIVE [None]
  - NEPHRITIS INTERSTITIAL [None]
  - NOCARDIOSIS [None]
  - PITYRIASIS LICHENOIDES ET VARIOLIFORMIS ACUTA [None]
  - PNEUMONIA [None]
  - SKIN ULCER [None]
  - VIRAL INFECTION [None]
